FAERS Safety Report 14933424 (Version 1)
Quarter: 2018Q2

REPORT INFORMATION
  Report Type: Spontaneous
  Country: US (occurrence: US)
  Receive Date: 20180524
  Receipt Date: 20180524
  Transmission Date: 20180711
  Serious: No
  Sender: FDA-Public Use
  Company Number: US-TEVA-801178USA

PATIENT
  Sex: Female

DRUGS (7)
  1. PEPTO-BISMOL [Concomitant]
     Active Substance: BISMUTH SUBSALICYLATE
     Dates: start: 20170816
  2. CLARITHROMYCIN. [Suspect]
     Active Substance: CLARITHROMYCIN
     Indication: GASTROINTESTINAL BACTERIAL INFECTION
     Dosage: 2 DOSAGE FORMS DAILY; 2 CAPSULES DAILY
     Route: 048
     Dates: start: 20170816
  3. MORPHINE [Concomitant]
     Active Substance: MORPHINE
  4. OMEPRAZOLE. [Concomitant]
     Active Substance: OMEPRAZOLE
     Dates: start: 20170816
  5. TUMS [Concomitant]
     Active Substance: CALCIUM CARBONATE
     Dates: start: 20170816
  6. AMOXICILLIN. [Suspect]
     Active Substance: AMOXICILLIN
     Indication: GASTROINTESTINAL BACTERIAL INFECTION
     Dosage: 2 DOSAGE FORMS DAILY; 1 TABLET TWICE DAILY
     Route: 065
  7. PEPPERMINT. [Concomitant]
     Active Substance: PEPPERMINT
     Dates: start: 20170816

REACTIONS (4)
  - Feeling hot [Unknown]
  - Crying [Unknown]
  - Abdominal discomfort [Unknown]
  - Abdominal pain upper [Unknown]

NARRATIVE: CASE EVENT DATE: 20170816
